FAERS Safety Report 23031682 (Version 5)
Quarter: 2024Q1

REPORT INFORMATION
  Report Type: Report from Study
  Country: CA (occurrence: CA)
  Receive Date: 20231005
  Receipt Date: 20240321
  Transmission Date: 20240410
  Serious: Yes (Other)
  Sender: FDA-Public Use
  Company Number: CA-JNJFOC-20230965505

PATIENT
  Age: 42 Year
  Sex: Female

DRUGS (2)
  1. REMICADE [Suspect]
     Active Substance: INFLIXIMAB
     Indication: Psoriatic arthropathy
     Dosage: EXPIRY: /AUG/2026
     Route: 041
     Dates: start: 20221109
  2. REMICADE [Suspect]
     Active Substance: INFLIXIMAB
     Route: 041
     Dates: start: 20231218

REACTIONS (11)
  - Throat tightness [Recovered/Resolved]
  - Confusional state [Recovered/Resolved]
  - Disorientation [Recovered/Resolved]
  - Infusion related reaction [Recovering/Resolving]
  - Lethargy [Recovered/Resolved]
  - Brain fog [Recovered/Resolved]
  - Pain in extremity [Recovering/Resolving]
  - Flushing [Unknown]
  - Nausea [Recovered/Resolved]
  - Vomiting [Unknown]
  - Palpitations [Recovered/Resolved]

NARRATIVE: CASE EVENT DATE: 20231108
